FAERS Safety Report 7602124-4 (Version None)
Quarter: 2011Q3

REPORT INFORMATION
  Report Type: 
  Country: None (occurrence: None)
  Receive Date: 20110711
  Receipt Date: 20110705
  Transmission Date: 20111222
  Serious: Yes (Life-Threatening, Hospitalization)
  Sender: FDA-Public Use
  Company Number: US-CELGENEUS-163-21880-11070360

PATIENT
  Age: 65 Year
  Sex: Female
  Weight: 90.8 kg

DRUGS (16)
  1. VITAMIN D [Concomitant]
     Route: 065
  2. REVLIMID [Suspect]
     Indication: MULTIPLE MYELOMA
     Dosage: 25 MILLIGRAM
     Route: 048
     Dates: start: 20101220, end: 20110609
  3. WARFARIN SODIUM [Concomitant]
     Route: 065
  4. VELCADE [Suspect]
     Indication: MULTIPLE MYELOMA
     Dosage: 1.9 MILLIGRAM
     Route: 051
     Dates: start: 20101212, end: 20110602
  5. TRICORE [Concomitant]
     Route: 065
  6. METFORMIN HCL [Concomitant]
     Route: 065
  7. ALLOPURINOL [Concomitant]
     Route: 065
  8. ASPIRIN [Concomitant]
     Route: 065
  9. BETASERON [Concomitant]
     Route: 065
  10. LOTREL [Concomitant]
     Route: 065
  11. DOXEPIN [Concomitant]
     Route: 065
  12. DEXAMETHASONE [Suspect]
     Indication: MULTIPLE MYELOMA
     Dosage: 20 MILLIGRAM
     Route: 048
     Dates: start: 20101218, end: 20110602
  13. HEOCYTE [Concomitant]
     Route: 065
  14. COREG [Concomitant]
     Route: 065
  15. ACYCLOVIR [Concomitant]
     Route: 065
  16. PRAVASTATIN [Concomitant]
     Route: 065

REACTIONS (3)
  - FEBRILE NEUTROPENIA [None]
  - ASTHENIA [None]
  - DYSPNOEA [None]
